FAERS Safety Report 22284275 (Version 1)
Quarter: 2023Q2

REPORT INFORMATION
  Report Type: Spontaneous
  Country: IR (occurrence: IR)
  Receive Date: 20230504
  Receipt Date: 20230504
  Transmission Date: 20230722
  Serious: Yes (Death)
  Sender: FDA-Public Use
  Company Number: IR-CHIESI-2023CHF01950

PATIENT

DRUGS (6)
  1. RETAVASE [Suspect]
     Active Substance: RETEPLASE
     Indication: Device malfunction
     Dosage: 3U/LM, 6U TOTAL DOSE
     Route: 065
  2. RETAVASE [Suspect]
     Active Substance: RETEPLASE
  3. RETAVASE [Suspect]
     Active Substance: RETEPLASE
  4. DEVICE [Suspect]
     Active Substance: DEVICE
     Indication: Device malfunction
     Dosage: UNK
  5. STERILE WATER [Suspect]
     Active Substance: WATER
     Indication: Device malfunction
     Dosage: UNK
  6. DEVICE [Suspect]
     Active Substance: DEVICE
     Indication: Device malfunction
     Dosage: UNK

REACTIONS (2)
  - Haemorrhagic stroke [Fatal]
  - Off label use [Recovered/Resolved]
